FAERS Safety Report 7344887-1 (Version None)
Quarter: 2011Q1

REPORT INFORMATION
  Report Type: 
  Country: None (occurrence: None)
  Receive Date: 20110228
  Receipt Date: 20110211
  Transmission Date: 20110831
  Serious: Yes (Hospitalization)
  Sender: FDA-Public Use
  Company Number: 012231

PATIENT
  Sex: Male
  Weight: 64.5 kg

DRUGS (5)
  1. LEVETIRACETAM [Suspect]
     Indication: PARTIAL SEIZURES
     Dosage: (2500 MG) ; (3000 MG)
     Dates: start: 20060101
  2. LEVETIRACETAM [Suspect]
     Indication: PARTIAL SEIZURES
     Dosage: (2500 MG) ; (3000 MG)
     Dates: start: 20060101
  3. LAMOTRIGINE [Concomitant]
  4. VALPROIC ACID [Concomitant]
  5. CLOBAZAM [Concomitant]

REACTIONS (5)
  - DECREASED ACTIVITY [None]
  - WEIGHT INCREASED [None]
  - ABNORMAL BEHAVIOUR [None]
  - GRAND MAL CONVULSION [None]
  - PSYCHOMOTOR SKILLS IMPAIRED [None]
